FAERS Safety Report 7618428-5 (Version None)
Quarter: 2011Q3

REPORT INFORMATION
  Report Type: 
  Country: None (occurrence: None)
  Receive Date: 20110718
  Receipt Date: 20110713
  Transmission Date: 20111222
  Serious: Yes (Other)
  Sender: FDA-Public Use
  Company Number: US-PFIZER INC-2011159321

PATIENT
  Sex: Male

DRUGS (4)
  1. LIPITOR [Suspect]
     Dosage: 20 MG, UNK
     Dates: end: 20090101
  2. LIPITOR [Suspect]
     Dosage: 10 MG, UNK
  3. XALATAN [Concomitant]
     Dosage: UNK
  4. LIPITOR [Suspect]
     Dosage: 40 MG, UNK
     Dates: start: 20090101

REACTIONS (4)
  - GLAUCOMA [None]
  - MUSCLE SPASMS [None]
  - MYALGIA [None]
  - BLINDNESS UNILATERAL [None]
